FAERS Safety Report 10144345 (Version 2)
Quarter: 2014Q2

REPORT INFORMATION
  Report Type: Report from Study
  Country: ES (occurrence: ES)
  Receive Date: 20140430
  Receipt Date: 20140430
  Transmission Date: 20141212
  Serious: Yes (Death, Life-Threatening, Hospitalization)
  Sender: FDA-Public Use
  Company Number: ES-CELGENEUS-144-C4047-14034619

PATIENT
  Age: 50 Year
  Sex: Female
  Weight: 64.8 kg

DRUGS (11)
  1. CC-4047 [Suspect]
     Indication: PLASMA CELL MYELOMA
     Dosage: 4 MILLIGRAM
     Route: 048
     Dates: start: 20140313, end: 20140324
  2. CC-4047 [Suspect]
     Dosage: 3 MILLIGRAM
     Route: 048
     Dates: start: 20140410, end: 20140411
  3. DEXAMETHASONE [Suspect]
     Indication: PLASMA CELL MYELOMA
     Dosage: 40 MILLIGRAM
     Route: 065
     Dates: start: 20140313, end: 20140324
  4. DEXAMETHASONE [Suspect]
     Route: 065
     Dates: start: 20140410, end: 20140411
  5. DIZEPAM [Concomitant]
     Indication: ANXIOLYTIC THERAPY
     Dosage: 5 MILLIGRAM
     Route: 048
  6. OMEPRAZOLE [Concomitant]
     Indication: PROPHYLAXIS
     Dosage: 20 MILLIGRAM
     Route: 048
  7. TRAMADOL [Concomitant]
     Indication: PAIN
     Dosage: 150 MILLIGRAM
     Route: 048
  8. ANFOTERICINA [Concomitant]
     Indication: ANTIFUNGAL PROPHYLAXIS
     Route: 048
     Dates: start: 2013
  9. ANFOTERICINA [Concomitant]
     Dosage: 3 MILLIGRAM/SQ. METER
     Route: 041
  10. COLISITIRE [Concomitant]
     Indication: INFECTION PROPHYLAXIS
     Route: 048
     Dates: start: 2013
  11. NEUPOGEN [Concomitant]
     Indication: NEUTROPENIA
     Dosage: 300 DOSAGE FORMS
     Route: 058
     Dates: start: 20140403, end: 20140403

REACTIONS (3)
  - Bronchopulmonary aspergillosis [Fatal]
  - Febrile neutropenia [Recovered/Resolved]
  - Plasmacytoma [Fatal]
